FAERS Safety Report 5104011-2 (Version None)
Quarter: 2006Q3

REPORT INFORMATION
  Report Type: 
  Country: None (occurrence: None)
  Receive Date: 20060908
  Receipt Date: 20060825
  Transmission Date: 20061208
  Serious: Yes (Hospitalization)
  Sender: FDA-Public Use
  Company Number: 2006S1000204

PATIENT
  Age: 58 Year
  Sex: Male
  Weight: 90.7194 kg

DRUGS (8)
  1. SORIATANE [Suspect]
     Indication: PSORIASIS
     Dosage: SEE IMAGE
     Route: 048
     Dates: start: 20060403, end: 20060101
  2. SORIATANE [Suspect]
     Indication: PSORIASIS
     Dosage: SEE IMAGE
     Route: 048
     Dates: start: 20060322, end: 20060402
  3. CLOBEX [Concomitant]
  4. ATENOLOL [Concomitant]
  5. NOVOLIN /00030501/ [Concomitant]
  6. ASPIRIN /00002701/ [Concomitant]
  7. METHOTREXATE [Concomitant]
  8. LOPID [Concomitant]

REACTIONS (3)
  - DIALYSIS [None]
  - MALAISE [None]
  - RENAL FAILURE [None]
